FAERS Safety Report 24608327 (Version 1)
Quarter: 2024Q4

REPORT INFORMATION
  Report Type: Spontaneous
  Country: US (occurrence: None)
  Receive Date: 20241111
  Receipt Date: 20241111
  Transmission Date: 20250115
  Serious: Yes (Disabling)
  Sender: Public
  Company Number: None

PATIENT
  Age: 54 Year
  Sex: Male
  Weight: 81 kg

DRUGS (9)
  1. TECLISTAMAB-CQYV [Suspect]
     Active Substance: TECLISTAMAB-CQYV
     Indication: Plasma cell myeloma
     Dosage: OTHER FREQUENCY : 1X/ TWO WEEKS;?
     Route: 030
     Dates: start: 20230315, end: 20240701
  2. TAMSULOSIN [Concomitant]
     Active Substance: TAMSULOSIN
  3. GABAPENTIN [Concomitant]
     Active Substance: GABAPENTIN
  4. CYMBALTA [Concomitant]
     Active Substance: DULOXETINE HYDROCHLORIDE
  5. WELLBUTRIN [Concomitant]
     Active Substance: BUPROPION HYDROCHLORIDE
  6. ACYCLOVIR [Concomitant]
     Active Substance: ACYCLOVIR
  7. ZEBETA [Concomitant]
     Active Substance: BISOPROLOL FUMARATE
  8. AMBIEN [Concomitant]
     Active Substance: ZOLPIDEM TARTRATE
  9. MOBIC [Concomitant]
     Active Substance: MELOXICAM

REACTIONS (3)
  - Tendon sheath disorder [None]
  - Inflammation [None]
  - Pain [None]

NARRATIVE: CASE EVENT DATE: 20231101
